FAERS Safety Report 14617279 (Version 1)
Quarter: 2018Q1

REPORT INFORMATION
  Report Type: Spontaneous
  Country: DE (occurrence: DE)
  Receive Date: 20180309
  Receipt Date: 20180309
  Transmission Date: 20180509
  Serious: Yes (Life-Threatening, Other)
  Sender: FDA-Public Use
  Company Number: DE-SA-2018SA067106

PATIENT
  Sex: Male

DRUGS (1)
  1. AUBAGIO [Suspect]
     Active Substance: TERIFLUNOMIDE
     Indication: MULTIPLE SCLEROSIS
     Route: 048
     Dates: start: 20140722, end: 201712

REACTIONS (3)
  - Lung abscess [Recovered/Resolved with Sequelae]
  - Infection [Recovered/Resolved with Sequelae]
  - Pneumonia [Recovered/Resolved with Sequelae]
